FAERS Safety Report 19880789 (Version 1)
Quarter: 2021Q3

REPORT INFORMATION
  Report Type: Report from Study
  Country: US (occurrence: US)
  Receive Date: 20210924
  Receipt Date: 20210924
  Transmission Date: 20211014
  Serious: Yes (Hospitalization, Other)
  Sender: FDA-Public Use
  Company Number: US-TAKEDA-2021TUS058564

PATIENT
  Sex: Female
  Weight: 59 kg

DRUGS (1)
  1. VEDOLIZUMAB [Suspect]
     Active Substance: VEDOLIZUMAB
     Indication: CROHN^S DISEASE
     Dosage: 300 MILLIGRAM, Q8WEEKS
     Route: 042
     Dates: end: 202105

REACTIONS (5)
  - Myocardial infarction [Unknown]
  - Weight decreased [Unknown]
  - Asthenia [Unknown]
  - Malaise [Unknown]
  - Pruritus [Recovered/Resolved]
